FAERS Safety Report 17893985 (Version 2)
Quarter: 2020Q2

REPORT INFORMATION
  Report Type: Spontaneous
  Country: SI (occurrence: SI)
  Receive Date: 20200615
  Receipt Date: 20200623
  Transmission Date: 20200714
  Serious: Yes (Hospitalization)
  Sender: FDA-Public Use
  Company Number: SI-ACTELION-A-CH2020-206160

PATIENT
  Sex: Female

DRUGS (1)
  1. OPSUMIT [Suspect]
     Active Substance: MACITENTAN
     Indication: PULMONARY VENO-OCCLUSIVE DISEASE
     Dosage: UNK
     Route: 048
     Dates: end: 20200611

REACTIONS (2)
  - Thrombocytopenia [Unknown]
  - Pulmonary veno-occlusive disease [Unknown]
